FAERS Safety Report 10081990 (Version 1)
Quarter: 2014Q2

REPORT INFORMATION
  Report Type: Spontaneous
  Country: US (occurrence: None)
  Receive Date: 20140414
  Receipt Date: 20140414
  Transmission Date: 20141212
  Serious: Yes (Hospitalization)
  Sender: FDA-Public Use
  Company Number: 2013-US-002142

PATIENT
  Age: 50 Year
  Sex: Female

DRUGS (10)
  1. XYREM (SODIUM OXYBATE) ORAL SOLUTION, 500MG/ML [Suspect]
     Indication: NARCOLEPSY
     Route: 048
     Dates: start: 200809, end: 2008
  2. PROPRANOLOL [Suspect]
     Indication: PRODUCT USED FOR UNKNOWN INDICATION
     Route: 048
     Dates: end: 201310
  3. ABILIFY (ARIPLPRAZOLE) [Concomitant]
  4. ASPIRIN (ACETYLSALICYLIC ACID) [Concomitant]
  5. CALCIUM 500+D (CALCIUM, COLECALCIFEROL) [Concomitant]
  6. EFFEXOR (VENLAFAXINE HYDROCLORIDE) [Concomitant]
  7. LAMICTAL (LAMOTRIGINE) [Concomitant]
  8. LITHIUM CARBONATE (LITHIUM CARBONATE) [Concomitant]
  9. SYNTHROID (LEVOTHYROXINE SODIUM) [Concomitant]
  10. VITAMIN B 2 (RIBOFLAVIN) [Concomitant]

REACTIONS (9)
  - Hypotension [None]
  - Heart rate decreased [None]
  - Diplopia [None]
  - Urinary tract infection [None]
  - Dizziness [None]
  - Dysstasia [None]
  - Nausea [None]
  - Vomiting [None]
  - Thyroid function test abnormal [None]
